FAERS Safety Report 5793224-2 (Version None)
Quarter: 2008Q2

REPORT INFORMATION
  Report Type: 
  Country: None (occurrence: None)
  Receive Date: 20080627
  Receipt Date: 20080612
  Transmission Date: 20081010
  Serious: Yes (Hospitalization, Other)
  Sender: FDA-Public Use
  Company Number: AT-ASTRAZENECA-2008PK01335

PATIENT
  Age: 25103 Day
  Sex: Female
  Weight: 70 kg

DRUGS (1)
  1. NOLVADEX [Suspect]
     Indication: BREAST CANCER
     Route: 048
     Dates: start: 20030319

REACTIONS (2)
  - ADENOMYOSIS [None]
  - DERMOID CYST OF OVARY [None]
